FAERS Safety Report 8188536-1 (Version None)
Quarter: 2012Q1

REPORT INFORMATION
  Report Type: 
  Country: None (occurrence: None)
  Receive Date: 20120306
  Receipt Date: 20120224
  Transmission Date: 20120608
  Serious: Yes (Death, Life-Threatening, Hospitalization)
  Sender: FDA-Public Use
  Company Number: BE-MPIJNJ-2012-01344

PATIENT

DRUGS (7)
  1. SOTALOL HCL [Concomitant]
     Indication: PROPHYLAXIS
     Dosage: 160 MG, UNK
     Route: 048
     Dates: start: 20090519, end: 20111230
  2. DEXAMETHASONE [Suspect]
     Indication: MULTIPLE MYELOMA
     Dosage: 160 MG, MONTHLY
     Route: 048
     Dates: start: 20111117, end: 20111126
  3. VELCADE [Suspect]
     Indication: MULTIPLE MYELOMA
     Dosage: 1.3 MG/M2, UNK
     Route: 042
     Dates: start: 20111121, end: 20111126
  4. L-THYROXINE                        /00068001/ [Concomitant]
     Indication: HYPOTHYROIDISM
     Dosage: 125 MG, UNK
     Route: 048
     Dates: start: 19961025
  5. NOVOMIX                            /01475801/ [Concomitant]
     Indication: DIABETES MELLITUS
     Dosage: UNK
     Route: 058
     Dates: start: 19961025, end: 20111230
  6. HYPERLIPEN [Concomitant]
     Indication: DYSLIPIDAEMIA
     Dosage: 100 MG, UNK
     Route: 048
     Dates: start: 20090819
  7. LERCANIDIPINE [Concomitant]
     Indication: HYPERTENSION
     Dosage: UNK
     Route: 048
     Dates: start: 20090819, end: 20111230

REACTIONS (4)
  - DISEASE PROGRESSION [None]
  - GENERAL PHYSICAL HEALTH DETERIORATION [None]
  - INFECTION [None]
  - RENAL FAILURE [None]
